FAERS Safety Report 5714241-4 (Version None)
Quarter: 2008Q2

REPORT INFORMATION
  Report Type: 
  Country: None (occurrence: None)
  Receive Date: 20080423
  Receipt Date: 20070917
  Transmission Date: 20081010
  Serious: No
  Sender: FDA-Public Use
  Company Number: US-KINGPHARMUSA00001-K200701206

PATIENT

DRUGS (2)
  1. SKELAXIN [Suspect]
     Indication: MUSCLE SPASMS
     Dosage: 800 MG, TID PRN
     Route: 048
     Dates: start: 20061101
  2. SKELAXIN [Suspect]

REACTIONS (2)
  - DIZZINESS [None]
  - DRUG INEFFECTIVE [None]
